FAERS Safety Report 23197210 (Version 2)
Quarter: 2023Q4

REPORT INFORMATION
  Report Type: Report from Study
  Country: AU (occurrence: AU)
  Receive Date: 20231117
  Receipt Date: 20231129
  Transmission Date: 20240110
  Serious: Yes (Hospitalization)
  Sender: FDA-Public Use
  Company Number: AU-PFIZER INC-PV202300185027

PATIENT
  Age: 29 Year
  Sex: Female
  Weight: 89.2 kg

DRUGS (2)
  1. ETRASIMOD [Suspect]
     Active Substance: ETRASIMOD
     Indication: Crohn^s disease
     Dosage: UNK, 1X/DAY
     Route: 048
     Dates: start: 20230511
  2. TAPENTADOL [Concomitant]
     Active Substance: TAPENTADOL
     Indication: Pain
     Dosage: 100 MG, AS NEEDED
     Route: 048
     Dates: start: 20230115

REACTIONS (2)
  - Abdominal pain lower [Recovering/Resolving]
  - Endometriosis [Recovering/Resolving]

NARRATIVE: CASE EVENT DATE: 20231108
